FAERS Safety Report 8065955-5 (Version None)
Quarter: 2012Q1

REPORT INFORMATION
  Report Type: 
  Country: None (occurrence: None)
  Receive Date: 20120124
  Receipt Date: 20120116
  Transmission Date: 20120608
  Serious: Yes (Other)
  Sender: FDA-Public Use
  Company Number: US-TEVA-318219USA

PATIENT
  Age: 72 Year
  Sex: Male

DRUGS (2)
  1. MESALAMINE [Suspect]
  2. MERCAPTOPURINE [Suspect]
     Dosage: 100 MILLIGRAM;
     Route: 048

REACTIONS (2)
  - RECTAL CANCER [None]
  - OFF LABEL USE [None]
